FAERS Safety Report 22188721 (Version 1)
Quarter: 2023Q2

REPORT INFORMATION
  Report Type: Report from Study
  Country: CH (occurrence: CH)
  Receive Date: 20230409
  Receipt Date: 20230409
  Transmission Date: 20230721
  Serious: Yes (Death, Other)
  Sender: FDA-Public Use
  Company Number: CH-002147023-NVSC2022CH263276

PATIENT
  Age: 61 Year
  Sex: Female
  Weight: 85.2 kg

DRUGS (2)
  1. KISQALI FEMARA CO-PACK [Suspect]
     Active Substance: LETROZOLE\RIBOCICLIB
     Indication: Breast cancer
     Dosage: 600 MG
     Route: 065
     Dates: start: 20221110
  2. ANASTROZOLE [Suspect]
     Active Substance: ANASTROZOLE
     Indication: Product used for unknown indication
     Dosage: 1 MG
     Route: 065
     Dates: start: 20221101

REACTIONS (26)
  - Liver injury [Fatal]
  - Ascites [Fatal]
  - Fatigue [Fatal]
  - Abdominal pain [Fatal]
  - Mental status changes [Fatal]
  - Nausea [Fatal]
  - White blood cell count decreased [Recovered/Resolved]
  - Neutrophil count decreased [Recovered/Resolved]
  - Blood alkaline phosphatase increased [Recovering/Resolving]
  - Hyperglycaemia [Recovered/Resolved]
  - Blood bilirubin increased [Recovering/Resolving]
  - Platelet count decreased [Recovered/Resolved]
  - Blood creatinine increased [Recovered/Resolved]
  - Hypocalcaemia [Not Recovered/Not Resolved]
  - Anaemia [Not Recovered/Not Resolved]
  - Lymphocyte count decreased [Not Recovered/Not Resolved]
  - Haemoglobin decreased [Unknown]
  - Blood lactate dehydrogenase increased [Not Recovered/Not Resolved]
  - Arthralgia [Not Recovered/Not Resolved]
  - Alanine aminotransferase increased [Recovered/Resolved]
  - Aspartate aminotransferase increased [Not Recovered/Not Resolved]
  - Hypoalbuminaemia [Not Recovered/Not Resolved]
  - Platelet count decreased [Not Recovered/Not Resolved]
  - White blood cell count decreased [Not Recovered/Not Resolved]
  - Neutrophil count decreased [Not Recovered/Not Resolved]
  - Alanine aminotransferase increased [Unknown]

NARRATIVE: CASE EVENT DATE: 20221107
